FAERS Safety Report 5491079-7 (Version None)
Quarter: 2007Q4

REPORT INFORMATION
  Report Type: 
  Country: None (occurrence: None)
  Receive Date: 20071019
  Receipt Date: 20070507
  Transmission Date: 20080405
  Serious: Yes (Other)
  Sender: FDA-Public Use
  Company Number: US-SANOFI-SYNTHELABO-A03200701055

PATIENT
  Sex: Female
  Weight: 130.2 kg

DRUGS (16)
  1. ARANESP [Concomitant]
     Dosage: UNK
     Route: 058
  2. NEUPOGEN [Concomitant]
     Dosage: UNK
     Route: 058
  3. RESTORIL [Concomitant]
     Dosage: UNK
     Route: 048
  4. AMBIEN [Concomitant]
     Route: 048
  5. LUNESTA [Concomitant]
     Dosage: UNK
     Route: 048
  6. LANTUS [Concomitant]
     Dosage: UNK
     Route: 058
  7. AVANDIA [Concomitant]
     Dosage: UNK
     Route: 048
  8. ZESTRIL [Concomitant]
     Dosage: UNK
     Route: 048
  9. GLUCOTROL [Concomitant]
     Route: 048
  10. GLUCOPHAGE [Concomitant]
     Dosage: UNK
     Route: 048
  11. ZOCOR [Concomitant]
     Dosage: UNK
     Route: 048
  12. LEUCOVORIN [Suspect]
     Indication: COLON CANCER STAGE III
     Route: 042
     Dates: start: 20060730, end: 20060730
  13. ELOXATIN [Suspect]
     Indication: COLON CANCER STAGE III
     Route: 042
     Dates: start: 20070101, end: 20070101
  14. DEXAMETHASONE 0.5MG TAB [Concomitant]
     Indication: PREMEDICATION
     Dosage: UNK
     Route: 065
  15. ZOFRAN [Concomitant]
     Indication: PREMEDICATION
     Route: 065
  16. FLUOROURACIL [Suspect]
     Indication: COLON CANCER STAGE III
     Route: 042
     Dates: start: 20060730, end: 20060730

REACTIONS (8)
  - ABDOMINAL PAIN [None]
  - BLOOD PRESSURE DECREASED [None]
  - HEART RATE INCREASED [None]
  - NAUSEA [None]
  - NEUTROPENIA [None]
  - PANCYTOPENIA [None]
  - PYREXIA [None]
  - VOMITING [None]
